FAERS Safety Report 9207968 (Version 1)
Quarter: 2013Q2

REPORT INFORMATION
  Report Type: Spontaneous
  Country: NL (occurrence: NL)
  Receive Date: 20130403
  Receipt Date: 20130403
  Transmission Date: 20140414
  Serious: Yes (Life-Threatening)
  Sender: FDA-Public Use
  Company Number: NL-TEVA-394410ISR

PATIENT
  Age: 44 Year
  Sex: Male
  Weight: 70 kg

DRUGS (2)
  1. AMOXICILLINE [Suspect]
     Indication: ANAL ABSCESS
     Dosage: 1500 MILLIGRAM DAILY; 3 KEER PER DAG 1 STUK(S)
     Route: 048
     Dates: start: 20130228, end: 20130301
  2. CARBASALAATCALCIUM POEDER 100MG [Concomitant]
     Route: 048
     Dates: start: 2005

REACTIONS (3)
  - Syncope [Recovered/Resolved]
  - Respiratory arrest [Recovered/Resolved]
  - Fall [None]
